FAERS Safety Report 22615768 (Version 1)
Quarter: 2023Q2

REPORT INFORMATION
  Report Type: Spontaneous
  Country: CN (occurrence: CN)
  Receive Date: 20230619
  Receipt Date: 20230619
  Transmission Date: 20230722
  Serious: Yes (Other)
  Sender: FDA-Public Use
  Company Number: CN-ABBVIE-5291961

PATIENT
  Age: 39 Year
  Sex: Male
  Weight: 60 kg

DRUGS (3)
  1. LOPINAVIR\RITONAVIR [Suspect]
     Active Substance: LOPINAVIR\RITONAVIR
     Indication: Antiviral treatment
     Dosage: 4 TABLET
     Route: 048
     Dates: start: 20130828, end: 20230331
  2. TENOFOVIR [Concomitant]
     Active Substance: TENOFOVIR
     Indication: Antiviral treatment
     Dosage: 300 MILLIGRAM
     Route: 048
     Dates: start: 20130328, end: 20230331
  3. LAMIVUDINE [Concomitant]
     Active Substance: LAMIVUDINE
     Indication: Antiviral treatment
     Dosage: 300 MILLIGRAM
     Route: 048
     Dates: start: 20080521, end: 20230331

REACTIONS (1)
  - Hyperlipidaemia [Recovering/Resolving]

NARRATIVE: CASE EVENT DATE: 20230331
